FAERS Safety Report 13517186 (Version 1)
Quarter: 2017Q2

REPORT INFORMATION
  Report Type: Spontaneous
  Country: US (occurrence: US)
  Receive Date: 20170505
  Receipt Date: 20170505
  Transmission Date: 20170830
  Serious: Yes (Hospitalization)
  Sender: FDA-Public Use
  Company Number: None

PATIENT
  Age: 63 Year
  Sex: Male
  Weight: 99.4 kg

DRUGS (10)
  1. FOLIC ACID. [Concomitant]
     Active Substance: FOLIC ACID
  2. GABAPENTIN. [Suspect]
     Active Substance: GABAPENTIN
  3. OXYCODONE [Suspect]
     Active Substance: OXYCODONE
     Indication: PAIN
     Dosage: DOSE - 10MG - TAKES Q4HR (PRN)?DATES OF USE - CHRONIC
     Route: 048
  4. ALBUTEROL. [Concomitant]
     Active Substance: ALBUTEROL
  5. ABILIFY [Suspect]
     Active Substance: ARIPIPRAZOLE
  6. BACLOFEN. [Suspect]
     Active Substance: BACLOFEN
  7. AMIODARONE [Concomitant]
     Active Substance: AMIODARONE
  8. VITAMIN C [Concomitant]
     Active Substance: ASCORBIC ACID
  9. LIORESAL [Concomitant]
     Active Substance: BACLOFEN
  10. CYMBALTA [Concomitant]
     Active Substance: DULOXETINE HYDROCHLORIDE

REACTIONS (4)
  - Mental status changes [None]
  - Somnolence [None]
  - Therapy cessation [None]
  - Pain [None]

NARRATIVE: CASE EVENT DATE: 20170128
